FAERS Safety Report 23204570 (Version 2)
Quarter: 2024Q3

REPORT INFORMATION
  Report Type: Spontaneous
  Country: DE (occurrence: DE)
  Receive Date: 20231120
  Receipt Date: 20240925
  Transmission Date: 20241017
  Serious: Yes (Other)
  Sender: STRIDES
  Company Number: None

PATIENT
  Age: 43 Year
  Sex: Female

DRUGS (11)
  1. PREDNISOLONE [Suspect]
     Active Substance: PREDNISOLONE
     Indication: Pemphigoid
     Dosage: 1 MILLIGRAM/KILOGRAM, PER BODY WEIGHT
     Route: 048
  2. PREDNISOLONE [Suspect]
     Active Substance: PREDNISOLONE
     Dosage: UNK
     Route: 048
  3. PREDNISOLONE [Suspect]
     Active Substance: PREDNISOLONE
     Dosage: 5 MILLIGRAM, QD
     Route: 048
  4. MYCOPHENOLATE MOFETIL [Suspect]
     Active Substance: MYCOPHENOLATE MOFETIL
     Indication: Pemphigoid
     Dosage: UNK
     Route: 048
  5. MYCOPHENOLATE MOFETIL [Suspect]
     Active Substance: MYCOPHENOLATE MOFETIL
     Dosage: 2 GRAM, QD
     Route: 048
  6. AZATHIOPRINE [Suspect]
     Active Substance: AZATHIOPRINE
     Indication: Pemphigoid
     Dosage: UNK
     Route: 048
  7. DAPSONE [Suspect]
     Active Substance: DAPSONE
     Indication: Pemphigoid
     Dosage: UNK
     Route: 048
  8. DAPSONE [Suspect]
     Active Substance: DAPSONE
     Dosage: UNK, (RESTARTED)
     Route: 065
  9. MOMETASONE [Suspect]
     Active Substance: MOMETASONE
     Indication: Pemphigoid
     Dosage: UNK (LOCAL THERAPY)
     Route: 065
  10. INTRATECT [Concomitant]
     Active Substance: HUMAN IMMUNOGLOBULIN G
     Indication: Pemphigoid
     Dosage: UNK
     Route: 042
  11. PFIZER-BIONTECH COVID-19 VACCINE [Concomitant]
     Active Substance: TOZINAMERAN
     Indication: COVID-19 immunisation
     Dosage: UNK, (FIRST DOSE)
     Route: 065

REACTIONS (4)
  - Methaemoglobinaemia [Unknown]
  - Hepatitis toxic [Unknown]
  - Steroid diabetes [Unknown]
  - Off label use [Unknown]
